FAERS Safety Report 8246331-9 (Version None)
Quarter: 2012Q1

REPORT INFORMATION
  Report Type: 
  Country: None (occurrence: None)
  Receive Date: 20120330
  Receipt Date: 20120322
  Transmission Date: 20120608
  Serious: Yes (Hospitalization, Other)
  Sender: FDA-Public Use
  Company Number: PR-ABBOTT-12P-131-0916759-00

PATIENT
  Sex: Female
  Weight: 65.83 kg

DRUGS (4)
  1. HUMIRA [Suspect]
     Route: 058
     Dates: end: 20100101
  2. IMURAN [Concomitant]
     Indication: PRODUCT USED FOR UNKNOWN INDICATION
     Dates: start: 20100101, end: 20120308
  3. HUMIRA [Suspect]
     Indication: CROHN'S DISEASE
     Dosage: S
     Route: 058
     Dates: start: 20080101
  4. HUMIRA [Suspect]
     Route: 058
     Dates: start: 20100101, end: 20120201

REACTIONS (5)
  - ANAL ABSCESS [None]
  - PSORIASIS [None]
  - CHOLELITHIASIS [None]
  - FISTULA [None]
  - ANAL FISTULA [None]
